FAERS Safety Report 21660024 (Version 1)
Quarter: 2022Q4

REPORT INFORMATION
  Report Type: Report from Study
  Country: US (occurrence: US)
  Receive Date: 20221130
  Receipt Date: 20221130
  Transmission Date: 20230113
  Serious: Yes (Other)
  Sender: FDA-Public Use
  Company Number: US-ABBVIE-4217394

PATIENT
  Sex: Female

DRUGS (1)
  1. HUMIRA [Suspect]
     Active Substance: ADALIMUMAB
     Indication: Ankylosing spondylitis
     Dosage: STRENGTH:40MG
     Route: 058

REACTIONS (16)
  - Sinus operation [Unknown]
  - Thyroid disorder [Unknown]
  - Mitral valve prolapse [Unknown]
  - Skin ulcer [Unknown]
  - Exposure to fungus [Unknown]
  - Ulcer haemorrhage [Unknown]
  - Heart rate increased [Recovered/Resolved]
  - Cardiovascular disorder [Not Recovered/Not Resolved]
  - Pain [Unknown]
  - Arthralgia [Unknown]
  - Sleep disorder [Unknown]
  - Insomnia [Unknown]
  - Impaired healing [Unknown]
  - Fatigue [Unknown]
  - Loss of personal independence in daily activities [Unknown]
  - Injury [Unknown]
